FAERS Safety Report 11108807 (Version 1)
Quarter: 2015Q2

REPORT INFORMATION
  Report Type: Spontaneous
  Country: US (occurrence: US)
  Receive Date: 20150513
  Receipt Date: 20150513
  Transmission Date: 20150821
  Serious: No
  Sender: FDA-Public Use
  Company Number: US-ASTRAZENECA-2009BM11159

PATIENT
  Age: 24610 Day
  Sex: Female
  Weight: 137.4 kg

DRUGS (6)
  1. BYETTA [Suspect]
     Active Substance: EXENATIDE
     Indication: DIABETES MELLITUS
     Dosage: 0.25 MG/ML,10 UG,TWO TIMES A DAY
     Route: 058
  2. BRILINTA [Suspect]
     Active Substance: TICAGRELOR
     Indication: ACUTE CORONARY SYNDROME
     Route: 048
  3. BYETTA [Suspect]
     Active Substance: EXENATIDE
     Indication: DIABETES MELLITUS
     Dosage: 0.25 MG/ML,5 UG,TWO TIMES A DAY
     Route: 058
  4. METFORMIN [Concomitant]
     Active Substance: METFORMIN HYDROCHLORIDE
     Dosage: UNK
  5. GLIPIZIDE. [Concomitant]
     Active Substance: GLIPIZIDE
     Dosage: UNK
  6. INFLUENZA VACCINE [Concomitant]
     Active Substance: INFLUENZA VIRUS VACCINE
     Dosage: UNK
     Dates: start: 20090921, end: 20090921

REACTIONS (4)
  - Weight decreased [Unknown]
  - Asthenia [Unknown]
  - Feeling abnormal [Unknown]
  - Pain in extremity [Unknown]

NARRATIVE: CASE EVENT DATE: 20090921
